FAERS Safety Report 24780863 (Version 3)
Quarter: 2025Q1

REPORT INFORMATION
  Report Type: Report from Study
  Country: US (occurrence: US)
  Receive Date: 20241227
  Receipt Date: 20250312
  Transmission Date: 20250409
  Serious: Yes (Hospitalization)
  Sender: ABBVIE
  Company Number: US-ABBVIE-6062822

PATIENT
  Age: 87 Year
  Sex: Female

DRUGS (1)
  1. RINVOQ [Suspect]
     Active Substance: UPADACITINIB
     Indication: Product used for unknown indication
     Route: 048
     Dates: start: 2023

REACTIONS (7)
  - Femur fracture [Unknown]
  - Feeding disorder [Unknown]
  - Weight decreased [Unknown]
  - Decreased appetite [Unknown]
  - Fall [Not Recovered/Not Resolved]
  - Confusional state [Unknown]
  - Rash [Unknown]
